FAERS Safety Report 5422584-7 (Version None)
Quarter: 2007Q3

REPORT INFORMATION
  Report Type: 
  Country: None (occurrence: None)
  Receive Date: 20070730
  Receipt Date: 20070403
  Transmission Date: 20080115
  Serious: Yes (Other)
  Sender: FDA-Public Use
  Company Number: 200710890BWH

PATIENT
  Age: 48 Year
  Sex: Female

DRUGS (2)
  1. AVELOX [Suspect]
     Indication: NASOPHARYNGITIS
     Dosage: 400 MG, ONCE, ORAL
     Route: 048
     Dates: start: 20070131
  2. AVELOX [Suspect]
     Indication: SINUSITIS
     Dosage: 400 MG, ONCE, ORAL
     Route: 048
     Dates: start: 20070131

REACTIONS (11)
  - ANAPHYLACTIC REACTION [None]
  - APHASIA [None]
  - DYSPHONIA [None]
  - DYSPNOEA [None]
  - ERYTHEMA [None]
  - PRURITUS [None]
  - PRURITUS GENERALISED [None]
  - RASH [None]
  - SENSATION OF FOREIGN BODY [None]
  - SWELLING FACE [None]
  - THROAT TIGHTNESS [None]
